FAERS Safety Report 5276802-9 (Version None)
Quarter: 2007Q1

REPORT INFORMATION
  Report Type: 
  Country: None (occurrence: None)
  Receive Date: 20070321
  Receipt Date: 20061127
  Transmission Date: 20070707
  Serious: Yes (Hospitalization)
  Sender: FDA-Public Use
  Company Number: 231801K06USA

PATIENT
  Age: 60 Year
  Sex: Female

DRUGS (5)
  1. REBIF [Suspect]
     Indication: MULTIPLE SCLEROSIS
     Dosage: 44 MCG, 3 IN 1 WEEKS, SUBCUTANEOUS
     Route: 058
     Dates: start: 20051212
  2. GABAPENTIN [Concomitant]
  3. PROVIGIL [Concomitant]
  4. QUINAPRIL HCL [Concomitant]
  5. TOPROL-XL [Concomitant]

REACTIONS (2)
  - CHEST PAIN [None]
  - FAMILY STRESS [None]
